FAERS Safety Report 5058036-6 (Version None)
Quarter: 2006Q3

REPORT INFORMATION
  Report Type: 
  Country: None (occurrence: None)
  Receive Date: 20060721
  Receipt Date: 20060523
  Transmission Date: 20061208
  Serious: No
  Sender: FDA-Public Use
  Company Number: US-GLAXOSMITHKLINE-A0606684A

PATIENT
  Age: 78 Year
  Sex: Female

DRUGS (5)
  1. AVANDIA [Suspect]
     Dosage: 8MG TWICE PER DAY
     Route: 048
     Dates: start: 20060101
  2. MOBIC [Concomitant]
  3. METOPROLOL TARTRATE [Concomitant]
  4. UNKNOWN [Concomitant]
  5. UNKNOWN [Concomitant]

REACTIONS (3)
  - HEADACHE [None]
  - HYPERHIDROSIS [None]
  - MALAISE [None]
